FAERS Safety Report 18733775 (Version 2)
Quarter: 2021Q3

REPORT INFORMATION
  Report Type: Report from Study
  Country: CA (occurrence: CA)
  Receive Date: 20210113
  Receipt Date: 20210705
  Transmission Date: 20211014
  Serious: Yes (Other)
  Sender: FDA-Public Use
  Company Number: CA-JNJFOC-20201151015

PATIENT
  Age: 35 Year
  Sex: Female
  Weight: 81.64 kg

DRUGS (1)
  1. REMICADE [Suspect]
     Active Substance: INFLIXIMAB
     Indication: UVEITIS
     Dosage: RECEIVED INFUSION ON 02?JAN?2021
     Route: 042
     Dates: start: 20190920

REACTIONS (9)
  - Staphylococcal infection [Not Recovered/Not Resolved]
  - Abdominal pain [Unknown]
  - Rhinorrhoea [Unknown]
  - Urinary tract infection [Unknown]
  - Hypersomnia [Unknown]
  - Malaise [Recovering/Resolving]
  - Nausea [Unknown]
  - Back pain [Unknown]
  - Muscle spasms [Unknown]

NARRATIVE: CASE EVENT DATE: 2020
